FAERS Safety Report 4696146-3 (Version None)
Quarter: 2005Q2

REPORT INFORMATION
  Report Type: 
  Country: None (occurrence: None)
  Receive Date: 20050620
  Receipt Date: 20050607
  Transmission Date: 20051028
  Serious: Yes (Death, Life-Threatening, Hospitalization)
  Sender: FDA-Public Use
  Company Number: 2005061722

PATIENT
  Age: 67 Year
  Sex: Female
  Weight: 37 kg

DRUGS (9)
  1. IRINOTECAN HYDROCHLORIDE SOLUTION, STERILE (IRINOTECFAN HYDROCHLORIDE) [Suspect]
     Indication: OVARIAN CANCER
     Dosage: 50 MG, INTRAVENOUS
     Route: 042
     Dates: start: 20050323, end: 20050323
  2. IRINOTECAN HYDROCHLORIDE SOLUTION, STERILE (IRINOTECFAN HYDROCHLORIDE) [Suspect]
     Indication: OVARIAN CANCER
     Dosage: 50 MG, INTRAVENOUS
     Route: 042
     Dates: start: 20050330, end: 20050330
  3. CISPLATIN [Suspect]
     Indication: OVARIAN CANCER
     Dosage: 50 MG, INTRAVENOUS
     Route: 042
     Dates: start: 20050323, end: 20050323
  4. VOLTAREN [Concomitant]
  5. VASOLATOR (GLYCERYL TRINITRATE) [Concomitant]
  6. HANGE-SHASHIN-TO (HERBAL PREPARATION) [Concomitant]
  7. MAGNESIUM HYDROXIDE (MAGNESIUM HYDROXIDE) [Concomitant]
  8. LOPEMIN (LOPERAMIDE HYDROCHLORIDE0 [Concomitant]
  9. PRIMPERAN TAB [Concomitant]

REACTIONS (13)
  - ABNORMAL FAECES [None]
  - ANOREXIA [None]
  - BLOOD PRESSURE DECREASED [None]
  - BONE MARROW DEPRESSION [None]
  - DEPRESSED LEVEL OF CONSCIOUSNESS [None]
  - DIARRHOEA [None]
  - DISSEMINATED INTRAVASCULAR COAGULATION [None]
  - HYPERBILIRUBINAEMIA [None]
  - JAUNDICE [None]
  - PANCYTOPENIA [None]
  - RESPIRATORY ARREST [None]
  - SHOCK [None]
  - VOMITING [None]
